FAERS Safety Report 10765928 (Version 1)
Quarter: 2015Q1

REPORT INFORMATION
  Report Type: Spontaneous
  Country: US (occurrence: None)
  Receive Date: 20150204
  Receipt Date: 20150204
  Transmission Date: 20150721
  Serious: Yes (Hospitalization)
  Sender: FDA-Public Use
  Company Number: None

PATIENT
  Age: 65 Year
  Sex: Male
  Weight: 103 kg

DRUGS (14)
  1. ASPIRIN. [Suspect]
     Active Substance: ASPIRIN
     Indication: AORTIC STENOSIS
     Dosage: RECENT, 81MG, QHS, PO
     Route: 048
  2. LOSARTAN [Concomitant]
     Active Substance: LOSARTAN
  3. MVI [Concomitant]
     Active Substance: VITAMINS
  4. ISOSORBID MONONITRATE [Concomitant]
     Active Substance: ISOSORBIDE MONONITRATE
  5. ASPIRIN. [Suspect]
     Active Substance: ASPIRIN
     Indication: CORONARY ARTERY BYPASS
     Dosage: RECENT, 81MG, QHS, PO
     Route: 048
  6. NORVASC [Concomitant]
     Active Substance: AMLODIPINE BESYLATE
  7. VITB12 [Concomitant]
  8. JANUMENT/SITAGILITIN [Concomitant]
  9. TIKOSYN [Concomitant]
     Active Substance: DOFETILIDE
  10. ATENOLOL. [Concomitant]
     Active Substance: ATENOLOL
  11. NIASPAN ER [Concomitant]
     Active Substance: NIACIN
  12. ASPIRIN. [Suspect]
     Active Substance: ASPIRIN
     Indication: CORONARY ARTERY DISEASE
     Dosage: RECENT, 81MG, QHS, PO
     Route: 048
  13. CRESTOR [Concomitant]
     Active Substance: ROSUVASTATIN CALCIUM
  14. VITD [Concomitant]

REACTIONS (6)
  - Large intestine polyp [None]
  - Gastrointestinal haemorrhage [None]
  - Haemorrhagic anaemia [None]
  - Occult blood positive [None]
  - Dizziness [None]
  - Barrett^s oesophagus [None]

NARRATIVE: CASE EVENT DATE: 20140501
